FAERS Safety Report 5421057-5 (Version None)
Quarter: 2007Q3

REPORT INFORMATION
  Report Type: 
  Country: None (occurrence: None)
  Receive Date: 20070821
  Receipt Date: 20070817
  Transmission Date: 20080115
  Serious: Yes (Hospitalization)
  Sender: FDA-Public Use
  Company Number: A0671272A

PATIENT
  Age: 62 Year
  Sex: Female

DRUGS (8)
  1. TYKERB [Suspect]
     Indication: BREAST CANCER
     Dosage: 1250MG PER DAY
     Route: 048
     Dates: start: 20070601
  2. XELODA [Concomitant]
  3. DEXTRAN [Concomitant]
  4. ZOLOFT [Concomitant]
  5. FEMARA [Concomitant]
  6. CENTRUM VITAMINS [Concomitant]
  7. CRESTOR [Concomitant]
  8. PEPCID [Concomitant]

REACTIONS (5)
  - FATIGUE [None]
  - HEADACHE [None]
  - HYPOTENSION [None]
  - MONOPLEGIA [None]
  - VISUAL FIELD DEFECT [None]
